FAERS Safety Report 9322556 (Version 1)
Quarter: 2013Q2

REPORT INFORMATION
  Report Type: Spontaneous
  Country: DE (occurrence: DE)
  Receive Date: 20130531
  Receipt Date: 20130531
  Transmission Date: 20140414
  Serious: Yes (Other)
  Sender: FDA-Public Use
  Company Number: DE-ASTRAZENECA-2013SE36490

PATIENT
  Age: 23 Year
  Sex: Female

DRUGS (7)
  1. SEROQUEL [Suspect]
     Indication: BORDERLINE PERSONALITY DISORDER
     Route: 048
     Dates: start: 20110806, end: 20120511
  2. KEPPRA [Suspect]
     Indication: EPILEPSY
     Route: 065
     Dates: start: 20110806, end: 20120511
  3. RIVOTRIL [Suspect]
     Indication: BORDERLINE PERSONALITY DISORDER
     Route: 065
     Dates: start: 20110806, end: 20120315
  4. LAMOTRIGIN [Suspect]
     Indication: EPILEPSY
     Route: 065
     Dates: start: 20110806, end: 20120511
  5. EUTHYROX [Concomitant]
     Indication: HYPOTHYROIDISM
     Dates: start: 20110806, end: 20120511
  6. STANGYL [Concomitant]
     Indication: BORDERLINE PERSONALITY DISORDER
     Dates: start: 20110806, end: 20111215
  7. HEROIN [Concomitant]
     Indication: DRUG ABUSE

REACTIONS (3)
  - Exposure during pregnancy [Unknown]
  - Drug abuse [Unknown]
  - Alcohol abuse [Unknown]
